FAERS Safety Report 18364037 (Version 2)
Quarter: 2020Q4

REPORT INFORMATION
  Report Type: Spontaneous
  Country: DE (occurrence: DE)
  Receive Date: 20201009
  Receipt Date: 20201017
  Transmission Date: 20210114
  Serious: Yes (Life-Threatening, Hospitalization, Disabling, Other)
  Sender: FDA-Public Use
  Company Number: DE-MACLEODS PHARMACEUTICALS US LTD-MAC2020028294

PATIENT

DRUGS (4)
  1. OLANZAPINE. [Suspect]
     Active Substance: OLANZAPINE
     Indication: SUSPECTED SUICIDE ATTEMPT
     Dosage: 160 DOSAGE FORM, SINGLE, MAXIMUM DOSE 160 ? 7.5 MG OF OLANZAPINE CORRESPONDING TO 1200 MG, 7.5 MG
     Route: 065
  2. DULOXETINE. [Concomitant]
     Active Substance: DULOXETINE
     Indication: MAJOR DEPRESSION
     Dosage: 90 MILLIGRAM, QD
     Route: 065
  3. LORAZEPAM. [Concomitant]
     Active Substance: LORAZEPAM
     Indication: MAJOR DEPRESSION
     Dosage: UNK, QD, UNKNOWN DOSE
     Route: 065
  4. OLANZAPINE. [Suspect]
     Active Substance: OLANZAPINE
     Indication: MAJOR DEPRESSION
     Dosage: 5 MILLIGRAM, QD
     Route: 065

REACTIONS (9)
  - Apallic syndrome [Not Recovered/Not Resolved]
  - Coma [Recovered/Resolved]
  - Cerebral haemorrhage [Not Recovered/Not Resolved]
  - Basal ganglia haemorrhage [Not Recovered/Not Resolved]
  - Toxicity to various agents [Unknown]
  - Brain oedema [Not Recovered/Not Resolved]
  - Neuroleptic malignant syndrome [Not Recovered/Not Resolved]
  - Quadriparesis [Not Recovered/Not Resolved]
  - Intentional overdose [Unknown]
